FAERS Safety Report 5991474-3 (Version None)
Quarter: 2008Q4

REPORT INFORMATION
  Report Type: 
  Country: None (occurrence: None)
  Receive Date: 20081211
  Receipt Date: 20080429
  Transmission Date: 20090506
  Serious: No
  Sender: FDA-Public Use
  Company Number: US-AMGEN-KDL276838

PATIENT
  Sex: Female

DRUGS (3)
  1. ENBREL [Suspect]
     Indication: RHEUMATOID ARTHRITIS
     Route: 058
     Dates: start: 20070704
  2. LEFLUNOMIDE [Concomitant]
     Route: 048
     Dates: start: 20080129
  3. PLAQUENIL [Concomitant]
     Route: 048
     Dates: start: 20070501

REACTIONS (1)
  - INJECTION SITE IRRITATION [None]
